FAERS Safety Report 6139891-5 (Version None)
Quarter: 2009Q1

REPORT INFORMATION
  Report Type: 
  Country: None (occurrence: None)
  Receive Date: 20090331
  Receipt Date: 20090331
  Transmission Date: 20090719
  Serious: No
  Sender: FDA-Public Use
  Company Number: None

PATIENT
  Age: 84 Year
  Sex: Male

DRUGS (2)
  1. HYDROCHLOROTHIAZIDE [Suspect]
     Indication: HYPERTENSION
     Dosage: 25 MG EVERY DAY PO
     Route: 048
     Dates: start: 20021003, end: 20090324
  2. CLONAZEPAM [Suspect]
     Dosage: 1 MG BID PO
     Route: 048
     Dates: start: 20021229, end: 20090324

REACTIONS (3)
  - DEHYDRATION [None]
  - DIZZINESS [None]
  - VERTIGO [None]
